FAERS Safety Report 15487454 (Version 1)
Quarter: 2018Q4

REPORT INFORMATION
  Report Type: Spontaneous
  Country: US (occurrence: US)
  Receive Date: 20181003
  Receipt Date: 20181003
  Transmission Date: 20190205
  Serious: Yes (Hospitalization)
  Sender: FDA-Public Use
  Company Number: None

PATIENT
  Age: 81 Year
  Sex: Male
  Weight: 86.18 kg

DRUGS (1)
  1. ENOXAPARIN (GENERIC) [Suspect]
     Active Substance: ENOXAPARIN
     Indication: PERIPHERAL ARTERIAL OCCLUSIVE DISEASE
     Route: 058
     Dates: start: 20180831, end: 20180831

REACTIONS (7)
  - Haemoglobin decreased [None]
  - Gastric haemorrhage [None]
  - Fatigue [None]
  - Gastrointestinal haemorrhage [None]
  - Melaena [None]
  - Off label use [None]
  - International normalised ratio increased [None]

NARRATIVE: CASE EVENT DATE: 20180831
